FAERS Safety Report 15423438 (Version 1)
Quarter: 2018Q4

REPORT INFORMATION
  Report Type: Spontaneous
  Country: ES (occurrence: ES)
  Receive Date: 20180925
  Receipt Date: 20180925
  Transmission Date: 20190204
  Serious: Yes (Other)
  Sender: FDA-Public Use
  Company Number: ES-AUROBINDO-AUR-APL-2018-046844

PATIENT
  Age: 2 Month
  Sex: Male

DRUGS (3)
  1. MEROPENEM. [Suspect]
     Active Substance: MEROPENEM
     Indication: ABDOMINAL OPERATION
     Dosage: 150 MILLIGRAM, (EVERY 8 HOURS)
     Route: 042
     Dates: start: 20170803, end: 20170824
  2. RANITIDINE. [Suspect]
     Active Substance: RANITIDINE
     Indication: ABDOMINAL OPERATION
     Dosage: 6 MILLIGRAM, (EVERY 8 HOURS)
     Route: 042
     Dates: start: 20170803, end: 20170825
  3. VANCOMICINA                         /00314401/ [Suspect]
     Active Substance: VANCOMYCIN
     Indication: ABDOMINAL OPERATION
     Dosage: 60 MILLIGRAM, (8 HOURS)
     Route: 042
     Dates: start: 20170803, end: 20170824

REACTIONS (1)
  - Eosinophilia [Recovered/Resolved]

NARRATIVE: CASE EVENT DATE: 20170810
